FAERS Safety Report 24893278 (Version 1)
Quarter: 2025Q1

REPORT INFORMATION
  Report Type: Spontaneous
  Country: DK (occurrence: DK)
  Receive Date: 20250128
  Receipt Date: 20250128
  Transmission Date: 20250409
  Serious: Yes (Disabling, Other)
  Sender: SANDOZ
  Company Number: None

PATIENT
  Age: 29 Year
  Sex: Male

DRUGS (1)
  1. HYRIMOZ [Suspect]
     Active Substance: ADALIMUMAB-ADAZ
     Indication: Crohn^s disease
     Route: 058
     Dates: start: 202210

REACTIONS (11)
  - Small fibre neuropathy [Not Recovered/Not Resolved]
  - Tunnel vision [Recovered/Resolved]
  - Kaleidoscope vision [Recovered/Resolved]
  - Hyperhidrosis [Not Recovered/Not Resolved]
  - Vision blurred [Recovered/Resolved]
  - Burning sensation [Not Recovered/Not Resolved]
  - Photopsia [Recovered/Resolved]
  - Fatigue [Not Recovered/Not Resolved]
  - Visual impairment [Recovered/Resolved]
  - Pyrexia [Not Recovered/Not Resolved]
  - Headache [Recovered/Resolved]

NARRATIVE: CASE EVENT DATE: 20230101
